FAERS Safety Report 11211057 (Version 1)
Quarter: 2015Q2

REPORT INFORMATION
  Report Type: Spontaneous
  Country: US (occurrence: US)
  Receive Date: 20150623
  Receipt Date: 20150623
  Transmission Date: 20150821
  Serious: Yes (Other)
  Sender: FDA-Public Use
  Company Number: US-BRISTOL-MYERS SQUIBB COMPANY-BMS-2015-038718

PATIENT
  Age: 23 Year
  Sex: Female

DRUGS (2)
  1. ARIPIPRAZOLE. [Suspect]
     Active Substance: ARIPIPRAZOLE
     Indication: BIPOLAR DISORDER
     Dosage: 15 MG, QD
     Route: 065
  2. ABILIFY [Suspect]
     Active Substance: ARIPIPRAZOLE
     Indication: BIPOLAR DISORDER
     Dosage: 20 MG, QD
     Route: 065
     Dates: start: 2010

REACTIONS (8)
  - Vomiting [Unknown]
  - Nausea [Not Recovered/Not Resolved]
  - Seizure [Unknown]
  - Depression [Unknown]
  - Insomnia [Unknown]
  - Panic reaction [Unknown]
  - Screaming [Unknown]
  - Anxiety [Unknown]

NARRATIVE: CASE EVENT DATE: 2014
